FAERS Safety Report 24546958 (Version 1)
Quarter: 2024Q4

REPORT INFORMATION
  Report Type: Report from Study
  Country: NL (occurrence: NL)
  Receive Date: 20241025
  Receipt Date: 20241025
  Transmission Date: 20250114
  Serious: Yes (Other)
  Sender: ABBVIE
  Company Number: NL-ABBVIE-5592383

PATIENT
  Age: 79 Year
  Sex: Male

DRUGS (16)
  1. CARBIDOPA\LEVODOPA [Suspect]
     Active Substance: CARBIDOPA\LEVODOPA
     Indication: Parkinson^s disease
     Dosage: MD 9.3 ML; CD 3.8 ML/H; ED 3.0 ML, REMAINS AT 24 HOURS
     Route: 050
     Dates: start: 20240326, end: 20240624
  2. CARBIDOPA\LEVODOPA [Suspect]
     Active Substance: CARBIDOPA\LEVODOPA
     Dosage: MD: 9.3 ML; CD: 3.8 ML/H; ED:3.0 ML; END: 3.00 ML; CND: 1.7 ML/H?REMAINS AT 24 HOURS
     Route: 050
     Dates: start: 20241009
  3. CARBIDOPA\LEVODOPA [Suspect]
     Active Substance: CARBIDOPA\LEVODOPA
     Dosage: DURATION TEXT: REMAINS AT 16 HOURS
     Route: 050
     Dates: start: 20220321
  4. CARBIDOPA\LEVODOPA [Suspect]
     Active Substance: CARBIDOPA\LEVODOPA
     Dosage: MD 11.0, CD 3.4, CND 3.0?DURATION TEXT: REMAINS AT 16 HOURS
     Route: 050
     Dates: start: 20230719, end: 20231018
  5. CARBIDOPA\LEVODOPA [Suspect]
     Active Substance: CARBIDOPA\LEVODOPA
     Dosage: MD 9.3, CD 3.4, ED 3.0; CND: 1.7; END: 3.0, DURATION TEXT: REMAINS AT 24 HOURS
     Route: 050
     Dates: start: 20240131, end: 20240219
  6. CARBIDOPA\LEVODOPA [Suspect]
     Active Substance: CARBIDOPA\LEVODOPA
     Dosage: MD 9.3 ML; CD 3.6 ML/H; ED 3.0 ML, REMAINS AT 24 HOURS
     Route: 050
     Dates: start: 20240219, end: 20240326
  7. CARBIDOPA\LEVODOPA [Suspect]
     Active Substance: CARBIDOPA\LEVODOPA
     Dosage: MD: 9.3 ML; CD: 3.8 ML/H; ED:3.0 ML; END: 3.00 ML; CND: 1.7 ML/H, REMAINS AT 24 HOURS
     Route: 050
     Dates: start: 20240624, end: 20241009
  8. CARBIDOPA\LEVODOPA [Suspect]
     Active Substance: CARBIDOPA\LEVODOPA
     Dosage: MD 11.0, CD 3.4, ED 3.0?DURATION TEXT: REMAINS AT 16 HOURS
     Route: 050
     Dates: start: 20231018, end: 20240115
  9. CARBIDOPA\LEVODOPA [Suspect]
     Active Substance: CARBIDOPA\LEVODOPA
     Dosage: MD 11.0, CD 3.4, ED 3.0?DURATION TEXT: REMAINS AT 16 HOURS
     Route: 050
     Dates: start: 20240115, end: 20240131
  10. BENSERAZIDE HYDROCHLORIDE\LEVODOPA [Concomitant]
     Active Substance: BENSERAZIDE HYDROCHLORIDE\LEVODOPA
     Indication: Parkinson^s disease
     Dosage: FORM STRENGTH: 125 MILLIGRAM
     Route: 065
  11. QUETIAPINE [Concomitant]
     Active Substance: QUETIAPINE
     Indication: Affective disorder
     Dosage: FOR THE NIGHT
  12. QUETIAPINE [Concomitant]
     Active Substance: QUETIAPINE
     Indication: Affective disorder
     Dosage: FORM STRENGTH: 12.5 MILLIGRAM?FREQUENCY TEXT: ONCE A DAY HALF A TABLET
     Route: 065
  13. FINASTERIDE [Concomitant]
     Active Substance: FINASTERIDE
     Indication: Prostatic disorder
     Dosage: FORM STRENGTH: 5  MILLIGRAM?OMH
     Route: 065
  14. BENSERAZIDE HYDROCHLORIDE\LEVODOPA [Concomitant]
     Active Substance: BENSERAZIDE HYDROCHLORIDE\LEVODOPA
     Indication: Parkinson^s disease
     Dosage: TIME INTERVAL: AS NECESSARY: FORM STRENGTH: 125 MILLIGRAM
  15. OMEPRAZOLE [Concomitant]
     Active Substance: OMEPRAZOLE
     Indication: Gastrointestinal disorder
     Dosage: OMEPRAZOLE MSR?FORM STRENGTH: 40 MILLIGRAM
     Route: 065
  16. ROPINIROLE [Concomitant]
     Active Substance: ROPINIROLE
     Indication: Parkinson^s disease
     Dosage: FORM STRENGTH: 2 MILLIGRAM?ROPINIROLE RETARD MGA
     Route: 065

REACTIONS (34)
  - Constipation [Not Recovered/Not Resolved]
  - Cognitive disorder [Not Recovered/Not Resolved]
  - Muscle rigidity [Not Recovered/Not Resolved]
  - Tremor [Recovered/Resolved]
  - Restless legs syndrome [Recovered/Resolved]
  - Aphasia [Not Recovered/Not Resolved]
  - Memory impairment [Not Recovered/Not Resolved]
  - Device loosening [Recovered/Resolved]
  - Abnormal dreams [Not Recovered/Not Resolved]
  - Stoma site reaction [Not Recovered/Not Resolved]
  - Hallucination [Not Recovered/Not Resolved]
  - Device issue [Recovered/Resolved]
  - Bradykinesia [Not Recovered/Not Resolved]
  - Device occlusion [Recovered/Resolved]
  - Posture abnormal [Not Recovered/Not Resolved]
  - Restlessness [Recovering/Resolving]
  - Reduced facial expression [Not Recovered/Not Resolved]
  - Muscle spasms [Not Recovered/Not Resolved]
  - Device dislocation [Recovered/Resolved]
  - Unevaluable event [Recovering/Resolving]
  - Feeling of body temperature change [Not Recovered/Not Resolved]
  - On and off phenomenon [Recovered/Resolved]
  - On and off phenomenon [Not Recovered/Not Resolved]
  - Tremor [Not Recovered/Not Resolved]
  - Stoma site haemorrhage [Not Recovered/Not Resolved]
  - Nocturia [Not Recovered/Not Resolved]
  - Speech disorder [Not Recovered/Not Resolved]
  - Depressed mood [Not Recovered/Not Resolved]
  - Loss of personal independence in daily activities [Not Recovered/Not Resolved]
  - Dyskinesia [Not Recovered/Not Resolved]
  - Speech disorder developmental [Not Recovered/Not Resolved]
  - Muscle twitching [Not Recovered/Not Resolved]
  - Weight decreased [Not Recovered/Not Resolved]
  - Depressed level of consciousness [Not Recovered/Not Resolved]

NARRATIVE: CASE EVENT DATE: 20240114
